FAERS Safety Report 14392568 (Version 1)
Quarter: 2018Q1

REPORT INFORMATION
  Report Type: Report from Study
  Country: US (occurrence: US)
  Receive Date: 20180116
  Receipt Date: 20180116
  Transmission Date: 20180509
  Serious: Yes (Hospitalization)
  Sender: FDA-Public Use
  Company Number: PHEH2014US013825

PATIENT
  Sex: Male

DRUGS (4)
  1. HECORIA [Suspect]
     Active Substance: TACROLIMUS
     Indication: COMPLICATIONS OF TRANSPLANTED KIDNEY
  2. MYFORTIC [Suspect]
     Active Substance: MYCOPHENOLATE SODIUM
     Indication: RENAL TRANSPLANT
     Dosage: 720 MG, BID
     Route: 048
  3. HECORIA [Suspect]
     Active Substance: TACROLIMUS
     Indication: LIVER TRANSPLANT
     Dosage: 2 MG, BID
     Route: 048
  4. MYFORTIC [Suspect]
     Active Substance: MYCOPHENOLATE SODIUM
     Indication: COMPLICATIONS OF TRANSPLANTED KIDNEY

REACTIONS (1)
  - Cytomegalovirus infection [Unknown]
